FAERS Safety Report 15296382 (Version 1)
Quarter: 2018Q3

REPORT INFORMATION
  Report Type: Other
  Country: AT (occurrence: AT)
  Receive Date: 20180820
  Receipt Date: 20180820
  Transmission Date: 20181010
  Serious: Yes (Death, Other)
  Sender: FDA-Public Use
  Company Number: AT-ASPEN-GLO2018AT007318

PATIENT
  Sex: Female

DRUGS (2)
  1. CYTARABINE. [Suspect]
     Active Substance: CYTARABINE
     Indication: ACUTE MYELOID LEUKAEMIA
     Dosage: UNK
     Route: 065
  2. TIOGUANINE [Suspect]
     Active Substance: THIOGUANINE ANHYDROUS
     Indication: ACUTE MYELOID LEUKAEMIA
     Dosage: UNK
     Route: 065

REACTIONS (6)
  - Epstein-Barr virus infection [Unknown]
  - Hepatosplenomegaly [Fatal]
  - Aspergillus infection [Unknown]
  - Histiocytosis haematophagic [Fatal]
  - Pancytopenia [Fatal]
  - Pyrexia [Fatal]
